FAERS Safety Report 6394119-6 (Version None)
Quarter: 2009Q4

REPORT INFORMATION
  Report Type: 
  Country: None (occurrence: None)
  Receive Date: 20091008
  Receipt Date: 20090928
  Transmission Date: 20100525
  Serious: Yes (Hospitalization)
  Sender: FDA-Public Use
  Company Number: FR-PFIZER INC-2009274551

PATIENT
  Age: 77 Year

DRUGS (13)
  1. TAHOR [Suspect]
     Dosage: UNK
     Route: 048
     Dates: end: 20090529
  2. RAMIPRIL [Suspect]
     Dosage: UNK
     Route: 048
     Dates: end: 20090529
  3. BUFLOMEDIL [Suspect]
     Dosage: UNK
     Route: 048
     Dates: end: 20090529
  4. SORIATANE [Suspect]
     Dosage: 25 MG, UNK
     Route: 048
     Dates: start: 20090401, end: 20090529
  5. FLUDEX [Concomitant]
  6. ALLOPURINOL [Concomitant]
  7. LYRICA [Concomitant]
  8. PARIET [Concomitant]
  9. SELOKEN [Concomitant]
  10. EFFEXOR [Concomitant]
  11. KARDEGIC [Concomitant]
  12. HUMALOG [Concomitant]
  13. DEXERYL ^PIERRE FABRE^ [Concomitant]

REACTIONS (5)
  - ECZEMA [None]
  - EOSINOPHILIA [None]
  - ERYTHEMA [None]
  - SEBORRHOEA [None]
  - TOXIC SKIN ERUPTION [None]
